FAERS Safety Report 15680291 (Version 2)
Quarter: 2018Q4

REPORT INFORMATION
  Report Type: Report from Study
  Country: GB (occurrence: GB)
  Receive Date: 20181203
  Receipt Date: 20181227
  Transmission Date: 20190205
  Serious: Yes (Hospitalization)
  Sender: FDA-Public Use
  Company Number: GB-CELGENEUS-GBR-20181108412

PATIENT
  Age: 81 Year
  Sex: Male

DRUGS (4)
  1. ARA-C [Suspect]
     Active Substance: CYTARABINE
     Indication: ACUTE MYELOID LEUKAEMIA
     Dosage: THIS COURSE WILL BE REPEATED AFTER A 2 WEEK REST PERIOD AND CONTINUE FOR FOUR COURSES (THEREFORE REP
     Route: 058
     Dates: start: 20171016
  2. REVLIMID [Suspect]
     Active Substance: LENALIDOMIDE
     Indication: ACUTE MYELOID LEUKAEMIA
     Dosage: THIS COURSE WILL BE REPEATED AFTER A 2 WEEK REST PERIOD AND CONTINUE FOR FOUR COURSES (THEREFORE REP
     Route: 048
     Dates: start: 20171016
  3. REVLIMID [Suspect]
     Active Substance: LENALIDOMIDE
     Indication: MYELODYSPLASTIC SYNDROME
  4. ARA-C [Suspect]
     Active Substance: CYTARABINE
     Indication: MYELODYSPLASTIC SYNDROME

REACTIONS (1)
  - Sepsis [Recovered/Resolved]

NARRATIVE: CASE EVENT DATE: 20171126
